FAERS Safety Report 21335601 (Version 1)
Quarter: 2022Q3

REPORT INFORMATION
  Report Type: Spontaneous
  Country: JP (occurrence: JP)
  Receive Date: 20220915
  Receipt Date: 20220915
  Transmission Date: 20221027
  Serious: Yes (Hospitalization, Other)
  Sender: FDA-Public Use
  Company Number: JP-JNJFOC-20220922282

PATIENT
  Age: 4 Decade
  Sex: Male

DRUGS (5)
  1. STELARA [Suspect]
     Active Substance: USTEKINUMAB
     Indication: Crohn^s disease
     Dosage: DOSE UNKNOWN
     Route: 041
     Dates: start: 202011
  2. STELARA [Suspect]
     Active Substance: USTEKINUMAB
     Route: 058
     Dates: start: 202101
  3. STELARA [Suspect]
     Active Substance: USTEKINUMAB
     Route: 058
     Dates: start: 2021
  4. STELARA [Suspect]
     Active Substance: USTEKINUMAB
     Route: 058
     Dates: start: 20220902
  5. SULFASALAZINE [Suspect]
     Active Substance: SULFASALAZINE
     Indication: Large intestine erosion
     Dosage: DOSE UNKNOWN
     Route: 065
     Dates: start: 202109

REACTIONS (3)
  - Vomiting [Recovered/Resolved]
  - Large intestine erosion [Unknown]
  - Nausea [Recovered/Resolved]

NARRATIVE: CASE EVENT DATE: 20210101
